FAERS Safety Report 4325305-4 (Version None)
Quarter: 2004Q1

REPORT INFORMATION
  Report Type: 
  Country: None (occurrence: None)
  Receive Date: 20040323
  Receipt Date: 20040310
  Transmission Date: 20041129
  Serious: Yes (Hospitalization, Other)
  Sender: FDA-Public Use
  Company Number: 2004200062JP

PATIENT
  Age: 37 Year
  Sex: Female
  Weight: 58 kg

DRUGS (6)
  1. SOLU-MEDROL [Suspect]
     Indication: EYE DISORDER
     Dosage: 1 G, QD; IV (SEE IMAGE)
     Route: 042
     Dates: start: 20040202, end: 20040204
  2. SOLU-MEDROL [Suspect]
     Indication: EYE DISORDER
     Dosage: 1 G, QD; IV (SEE IMAGE)
     Route: 042
     Dates: start: 20040209, end: 20040211
  3. INDERAL [Suspect]
     Indication: PALPITATIONS
     Dosage: 30 MG, TID; ORAL
     Route: 048
     Dates: start: 20040203, end: 20040214
  4. PREDNISOLONE [Suspect]
     Indication: EYE DISORDER
     Dosage: 30 MG, BID;ORAL (SEE IMAGE)
     Route: 048
     Dates: start: 20040205, end: 20040218
  5. PREDNISOLONE [Suspect]
     Indication: EYE DISORDER
     Dosage: 30 MG, BID;ORAL (SEE IMAGE)
     Route: 048
     Dates: start: 20040219, end: 20040225
  6. PREDNISOLONE [Suspect]
     Indication: EYE DISORDER
     Dosage: 30 MG, BID;ORAL (SEE IMAGE)
     Route: 048
     Dates: start: 20040226

REACTIONS (4)
  - ACNE [None]
  - DRUG HYPERSENSITIVITY [None]
  - PYREXIA [None]
  - TOXIC SKIN ERUPTION [None]
